FAERS Safety Report 4443597-8 (Version None)
Quarter: 2004Q3

REPORT INFORMATION
  Report Type: 
  Country: None (occurrence: None)
  Receive Date: 20040908
  Receipt Date: 20040810
  Transmission Date: 20050211
  Serious: Yes (Other)
  Sender: FDA-Public Use
  Company Number: PHFR2004GB03145

PATIENT
  Age: 55 Year
  Sex: Female
  Weight: 90 kg

DRUGS (4)
  1. GLEEVEC [Suspect]
     Indication: CHRONIC MYELOID LEUKAEMIA
     Route: 048
     Dates: start: 20040111
  2. CETIRIZINE HCL [Concomitant]
     Indication: SEASONAL ALLERGY
     Dosage: 10 MG/DAY
     Route: 048
  3. PROCHLORPERAZINE MALEATE [Concomitant]
     Indication: NAUSEA
  4. ALBUTEROL SULFATE [Concomitant]
     Indication: ASTHMA

REACTIONS (6)
  - DENTAL CARIES [None]
  - DIARRHOEA [None]
  - EYE SWELLING [None]
  - FATIGUE [None]
  - NAUSEA [None]
  - WEIGHT INCREASED [None]
